FAERS Safety Report 6020479-1 (Version None)
Quarter: 2008Q4

REPORT INFORMATION
  Report Type: 
  Country: None (occurrence: None)
  Receive Date: 20081226
  Receipt Date: 20081215
  Transmission Date: 20090506
  Serious: Yes (Other)
  Sender: FDA-Public Use
  Company Number: US-ROCHE-552205

PATIENT
  Sex: Female
  Weight: 59 kg

DRUGS (3)
  1. ACCUTANE [Suspect]
     Dosage: REPORTED AS 40MG BID
     Route: 065
     Dates: start: 19861107, end: 19870411
  2. ACCUTANE [Suspect]
     Route: 065
     Dates: start: 19881125, end: 19890317
  3. DEMULEN 1/35-21 [Concomitant]
     Dates: start: 19860811, end: 19870522

REACTIONS (8)
  - COLITIS [None]
  - DEAFNESS UNILATERAL [None]
  - DEPRESSION [None]
  - FACE INJURY [None]
  - GASTROINTESTINAL PAIN [None]
  - HOT FLUSH [None]
  - INFLAMMATORY BOWEL DISEASE [None]
  - SUICIDAL IDEATION [None]
